FAERS Safety Report 23333268 (Version 1)
Quarter: 2023Q4

REPORT INFORMATION
  Report Type: Spontaneous
  Country: NL (occurrence: NL)
  Receive Date: 20231222
  Receipt Date: 20231222
  Transmission Date: 20240110
  Serious: Yes (Other)
  Sender: FDA-Public Use
  Company Number: NL-BAUSCH-BL-2023-018843

PATIENT
  Sex: Female

DRUGS (6)
  1. HYDROCORTISONE BUTYRATE [Suspect]
     Active Substance: HYDROCORTISONE BUTYRATE
     Indication: Dermatitis atopic
     Dosage: AROUND THE EYES FOR MANY YEARS
     Route: 061
  2. HYDROCORTISONE ACETATE [Suspect]
     Active Substance: HYDROCORTISONE ACETATE
     Indication: Dermatitis atopic
     Dosage: AROUND THE EYES FOR MANY YEARS
     Route: 061
  3. BUDESONIDE [Suspect]
     Active Substance: BUDESONIDE
     Indication: Hypersensitivity
     Dosage: INTRANASAL
     Route: 045
  4. DEXAMETHASONE [Suspect]
     Active Substance: DEXAMETHASONE
     Indication: Conjunctivitis allergic
     Route: 061
  5. DEXAMETHASONE\GENTAMICIN [Suspect]
     Active Substance: DEXAMETHASONE\GENTAMICIN
     Indication: Conjunctivitis allergic
     Route: 061
  6. NEDOCROMIL [Concomitant]
     Active Substance: NEDOCROMIL
     Indication: Conjunctivitis allergic
     Route: 061

REACTIONS (1)
  - Glaucoma [Recovering/Resolving]
